FAERS Safety Report 8204882-7 (Version None)
Quarter: 2012Q1

REPORT INFORMATION
  Report Type: 
  Country: None (occurrence: None)
  Receive Date: 20120313
  Receipt Date: 20120229
  Transmission Date: 20120608
  Serious: Yes (Hospitalization, Other)
  Sender: FDA-Public Use
  Company Number: JP-ELI_LILLY_AND_COMPANY-JP201106003544

PATIENT
  Age: 56 Year
  Sex: Female

DRUGS (1)
  1. FORTEO [Suspect]
     Dosage: UNK
     Route: 058
     Dates: start: 20110524

REACTIONS (12)
  - CONSTIPATION [None]
  - BACK PAIN [None]
  - GASTRITIS [None]
  - DECREASED APPETITE [None]
  - ARTHRALGIA [None]
  - LUMBAR VERTEBRAL FRACTURE [None]
  - KNEE OPERATION [None]
  - MYALGIA [None]
  - MALAISE [None]
  - NAUSEA [None]
  - ASTHENIA [None]
  - GANGRENE [None]
